FAERS Safety Report 7825322-3 (Version None)
Quarter: 2011Q4

REPORT INFORMATION
  Report Type: 
  Country: None (occurrence: None)
  Receive Date: 20111019
  Receipt Date: 20111017
  Transmission Date: 20120403
  Serious: Yes (Hospitalization)
  Sender: FDA-Public Use
  Company Number: FR-GLAXOSMITHKLINE-B0755906A

PATIENT
  Sex: Female

DRUGS (5)
  1. RABEPRAZOLE SODIUM [Suspect]
     Indication: PRODUCT USED FOR UNKNOWN INDICATION
     Route: 048
     Dates: end: 20110901
  2. ASPIRIN [Concomitant]
     Route: 065
  3. LEVOTHYROXINE SODIUM [Concomitant]
     Route: 065
  4. NEBIVOLOL HCL [Concomitant]
     Route: 065
  5. PAROXETINE HCL [Suspect]
     Indication: PRODUCT USED FOR UNKNOWN INDICATION
     Dosage: 20MG PER DAY
     Route: 048
     Dates: start: 20110815, end: 20110901

REACTIONS (5)
  - FALL [None]
  - ECCHYMOSIS [None]
  - STERNAL FRACTURE [None]
  - COGNITIVE DISORDER [None]
  - HYPONATRAEMIA [None]
